FAERS Safety Report 5475166-5 (Version None)
Quarter: 2007Q4

REPORT INFORMATION
  Report Type: 
  Country: None (occurrence: None)
  Receive Date: 20071002
  Receipt Date: 20070920
  Transmission Date: 20080405
  Serious: Yes (Other)
  Sender: FDA-Public Use
  Company Number: US-ELI_LILLY_AND_COMPANY-US200709000538

PATIENT
  Age: 89 Year
  Sex: Female

DRUGS (4)
  1. TENORMIN [Concomitant]
  2. TEMAZEPAM [Concomitant]
     Indication: INSOMNIA
  3. PLAVIX [Concomitant]
     Dosage: 75 MG, UNK
  4. FORTEO [Suspect]
     Indication: OSTEOPOROSIS
     Dates: start: 20070715, end: 20070730

REACTIONS (17)
  - CARDIAC DISORDER [None]
  - CHEST DISCOMFORT [None]
  - DIZZINESS [None]
  - DYSPNOEA [None]
  - EYE OEDEMA [None]
  - EYELID OEDEMA [None]
  - FACE OEDEMA [None]
  - FATIGUE [None]
  - HYPERSENSITIVITY [None]
  - INSOMNIA [None]
  - LEFT VENTRICULAR DYSFUNCTION [None]
  - ORTHOPNOEA [None]
  - PULMONARY HYPERTENSION [None]
  - PULMONARY OEDEMA [None]
  - RASH [None]
  - URTICARIA [None]
  - VISUAL DISTURBANCE [None]
